FAERS Safety Report 7080658-1 (Version None)
Quarter: 2010Q4

REPORT INFORMATION
  Report Type: 
  Country: None (occurrence: None)
  Receive Date: 20101025
  Receipt Date: 20101019
  Transmission Date: 20110411
  Serious: Yes (Death, Other)
  Sender: FDA-Public Use
  Company Number: 2010SP042173

PATIENT
  Age: 55 Year
  Sex: Male

DRUGS (17)
  1. SAPHRIS [Suspect]
     Indication: BIPOLAR I DISORDER
     Dosage: 5 MG; HS; SL, 10 MG; BID; SL
     Route: 060
     Dates: end: 20100729
  2. SAPHRIS [Suspect]
     Indication: SCHIZOPHRENIA
     Dosage: 5 MG; HS; SL, 10 MG; BID; SL
     Route: 060
     Dates: end: 20100729
  3. SAPHRIS [Suspect]
     Indication: BIPOLAR I DISORDER
     Dosage: 5 MG; HS; SL, 10 MG; BID; SL
     Route: 060
     Dates: start: 20100714
  4. SAPHRIS [Suspect]
     Indication: SCHIZOPHRENIA
     Dosage: 5 MG; HS; SL, 10 MG; BID; SL
     Route: 060
     Dates: start: 20100714
  5. SAPHRIS [Suspect]
  6. SAPHRIS [Suspect]
  7. VALPROIC ACID [Concomitant]
  8. HYDROCODONE [Concomitant]
  9. SYNTHROID [Concomitant]
  10. DEPAKOTE [Concomitant]
  11. LIDODERM [Concomitant]
  12. XANAX [Concomitant]
  13. NEXIUM [Concomitant]
  14. PAXIL [Concomitant]
  15. LORCET-HD [Concomitant]
  16. NYSTATIN [Concomitant]
  17. VALPROIC ACID [Concomitant]

REACTIONS (7)
  - AGITATION [None]
  - ANGER [None]
  - COMPLETED SUICIDE [None]
  - GUN SHOT WOUND [None]
  - HALLUCINATION [None]
  - LOGORRHOEA [None]
  - NERVOUSNESS [None]
